FAERS Safety Report 4868980-8 (Version None)
Quarter: 2005Q4

REPORT INFORMATION
  Report Type: 
  Country: None (occurrence: None)
  Receive Date: 20051223
  Receipt Date: 20051213
  Transmission Date: 20060501
  Serious: Yes (Hospitalization)
  Sender: FDA-Public Use
  Company Number: 2005168250

PATIENT
  Sex: Male

DRUGS (3)
  1. ATARAX [Suspect]
     Indication: ILL-DEFINED DISORDER
     Dosage: PLACENTAL
     Route: 064
     Dates: start: 20050201, end: 20051025
  2. HALOPERIDOL [Suspect]
     Indication: ILL-DEFINED DISORDER
     Dosage: PLACENTAL
     Route: 064
     Dates: start: 20050201, end: 20051025
  3. CHLORPROMAZINE HCL [Suspect]
     Indication: ILL-DEFINED DISORDER
     Dosage: PLACENTAL
     Route: 064
     Dates: start: 20050201, end: 20051025

REACTIONS (7)
  - APGAR SCORE LOW [None]
  - DRUG EXPOSURE DURING PREGNANCY [None]
  - FEEDING DISORDER NEONATAL [None]
  - HYPERTONIA NEONATAL [None]
  - INSOMNIA [None]
  - NEONATAL TACHYPNOEA [None]
  - TREMOR NEONATAL [None]
